FAERS Safety Report 9006088 (Version 1)
Quarter: 2013Q1

REPORT INFORMATION
  Report Type: Spontaneous
  Country: JP (occurrence: JP)
  Receive Date: 20130109
  Receipt Date: 20130109
  Transmission Date: 20140127
  Serious: Yes (Other)
  Sender: FDA-Public Use
  Company Number: PHHY2013JP001610

PATIENT
  Age: 67 Year
  Sex: Female

DRUGS (5)
  1. HEPARIN [Suspect]
     Indication: CEREBRAL INFARCTION
     Dosage: 1000 IU, QD
     Route: 042
  2. HEPARIN [Suspect]
     Dosage: 12000 U, QD
     Route: 042
  3. OZAGREL [Concomitant]
     Indication: CEREBRAL INFARCTION
  4. ARGATROBAN [Concomitant]
     Indication: CEREBRAL INFARCTION
     Dosage: 20 MG, UNK
  5. ARGATROBAN [Concomitant]
     Dosage: 2.5 MG, PER HOUR

REACTIONS (14)
  - Cerebrovascular accident [Recovering/Resolving]
  - Cerebral infarction [Recovering/Resolving]
  - Altered state of consciousness [Recovering/Resolving]
  - Aphasia [Recovering/Resolving]
  - Hemiparesis [Recovering/Resolving]
  - Dyspnoea [Unknown]
  - Deep vein thrombosis [Recovering/Resolving]
  - Heparin-induced thrombocytopenia [Recovered/Resolved]
  - Purpura [Recovered/Resolved]
  - Petechiae [Recovered/Resolved]
  - Haematuria [Recovered/Resolved]
  - Femoral artery occlusion [Recovering/Resolving]
  - Thrombophlebitis [Recovering/Resolving]
  - Pain in extremity [Recovering/Resolving]
